FAERS Safety Report 16939801 (Version 1)
Quarter: 2019Q4

REPORT INFORMATION
  Report Type: Spontaneous
  Country: JP (occurrence: JP)
  Receive Date: 20191021
  Receipt Date: 20191021
  Transmission Date: 20200122
  Serious: Yes (Other)
  Sender: FDA-Public Use
  Company Number: JP-GLAXOSMITHKLINE-JP2019JPN188155

PATIENT
  Age: 67 Year
  Sex: Female

DRUGS (1)
  1. ZANTAC [Suspect]
     Active Substance: RANITIDINE HYDROCHLORIDE
     Dosage: 150 MG, QD, MORNING
     Route: 048
     Dates: start: 2009, end: 20191011

REACTIONS (5)
  - Abdominal pain upper [Unknown]
  - Abdominal discomfort [Unknown]
  - Product use issue [Unknown]
  - Peptic ulcer [Unknown]
  - Feeding disorder [Unknown]

NARRATIVE: CASE EVENT DATE: 2009
